FAERS Safety Report 18129268 (Version 1)
Quarter: 2020Q3

REPORT INFORMATION
  Report Type: Spontaneous
  Country: CH (occurrence: CH)
  Receive Date: 20200810
  Receipt Date: 20200810
  Transmission Date: 20201103
  Serious: Yes (Other)
  Sender: FDA-Public Use
  Company Number: CH-CHEPLA-C20202288

PATIENT
  Age: 64 Year

DRUGS (2)
  1. FOSCARNET [Suspect]
     Active Substance: FOSCARNET
     Indication: CYTOMEGALOVIRUS INFECTION
     Dosage: 50 MG/KG TWICE DAILY
     Route: 042
  2. GANCICLOVIR. [Suspect]
     Active Substance: GANCICLOVIR
     Indication: CYTOMEGALOVIRUS INFECTION
     Dosage: 5 MG/KG IV TWICE DAILY
     Route: 042

REACTIONS (5)
  - Genital ulceration [Unknown]
  - Acute kidney injury [Unknown]
  - Oesophageal ulcer [Unknown]
  - Fanconi syndrome [Unknown]
  - Pathogen resistance [Unknown]
